FAERS Safety Report 24768230 (Version 2)
Quarter: 2024Q4

REPORT INFORMATION
  Report Type: Report from Study
  Country: PT (occurrence: PT)
  Receive Date: 20241223
  Receipt Date: 20241226
  Transmission Date: 20250115
  Serious: Yes (Other)
  Sender: ABBVIE
  Company Number: PT-ABBVIE-6058327

PATIENT
  Age: 64 Year
  Sex: Male

DRUGS (17)
  1. CARBIDOPA\LEVODOPA [Suspect]
     Active Substance: CARBIDOPA\LEVODOPA
     Indication: Parkinson^s disease
     Dosage: 240 MG + 12 MG, LOAD0.9;HIGH0.65;BASE0.6;LOW0.55;EXT0.2
     Route: 058
     Dates: start: 202411
  2. CARBIDOPA\LEVODOPA [Suspect]
     Active Substance: CARBIDOPA\LEVODOPA
     Dosage: 240 MG + 12 MG, LOAD1;HIGH0.65;BASE0.6;LOW0.45;EXT0.2, LAST ADMIN DATE: NOV 2024
     Route: 058
     Dates: start: 20241111
  3. MIDODRINE HYDROCHLORIDE [Concomitant]
     Active Substance: MIDODRINE HYDROCHLORIDE
     Indication: Orthostatic hypotension
     Dosage: 2 TABLET, AT BREAKFAST, BEFORE DUODOPA?FORM STRENGTH: 2.5 MILLLIGRAMS
  4. MEMANTINE [Concomitant]
     Active Substance: MEMANTINE
     Indication: Product used for unknown indication
     Dosage: 1 TABLET, AT BREAKFAST, BEFORE DUODOPA?FORM STRENGTH: 20 MILLIGRAMS
  5. MIRTAZAPINE [Concomitant]
     Active Substance: MIRTAZAPINE
     Indication: Product used for unknown indication
     Dosage: 1 TABLET, AT BEDTIME, BEFORE DUODOPA?FORM STRENGTH: 30 MILLIGRAMS
  6. Symprove [Concomitant]
     Indication: Product used for unknown indication
     Dosage: BEFORE DUODOPA?FORM STRENGTH: 70 MILLIGRAMS
  7. Esomeprazole lumec [Concomitant]
     Indication: Product used for unknown indication
     Dosage: BEFORE DUODOPA,
  8. Macrogol generis [Concomitant]
     Indication: Product used for unknown indication
     Dosage: BEFORE DUODOPA
  9. RIVOTRIL [Concomitant]
     Active Substance: CLONAZEPAM
     Indication: Product used for unknown indication
     Dosage: 2 TABLET, 0.5TAB MORNING+0.5TAB 4PM+1TAB BEDTIME, BEFORE DUODOPA?FORM STRENGTH: 0.5 MILLIGRAMS
  10. MELATONIN [Concomitant]
     Active Substance: MELATONIN
     Indication: Product used for unknown indication
     Dosage: 1 TABLET, AT BEDTIME, BEFORE DUODOPA?FORM STRENGTH: 2 MG
  11. Combodart  0.5/0.4 (dutasteride + tamsulosin) [Concomitant]
     Indication: Product used for unknown indication
     Dosage: 1 TABLET
  12. Alzen [Concomitant]
     Indication: Agitation
     Dosage: 0.5 TABLET, BEFORE DUODOPA?FORM STRENGTH: 25 MG
  13. DULOXETINE HYDROCHLORIDE [Concomitant]
     Active Substance: DULOXETINE HYDROCHLORIDE
     Indication: Product used for unknown indication
     Dosage: 1 TABLET, IN THE MORNING,BEFORE DUODOPA?FORM STRENGTH: 60 MG
  14. NEUROBION [Concomitant]
     Active Substance: CYANOCOBALAMIN\PYRIDOXINE\THIAMINE
     Indication: Product used for unknown indication
     Dosage: BEFORE DUODOPA
  15. DUTASTERIDE [Concomitant]
     Active Substance: DUTASTERIDE
     Indication: Product used for unknown indication
     Dosage: 1 TABLET, AT DINNER, BEFORE DUODOPA
  16. EXELON [Concomitant]
     Active Substance: RIVASTIGMINE TARTRATE
     Indication: Product used for unknown indication
     Dosage: 1 PATCH DAILY, BEFORE DUODOPA
     Route: 062
  17. XADAGO [Concomitant]
     Active Substance: SAFINAMIDE MESYLATE
     Indication: Parkinson^s disease
     Dosage: 1 TABLET, AT LUNCH, BEFORE DUODOPA?FORM STRENGTH: 50 MG

REACTIONS (9)
  - Pyrexia [Not Recovered/Not Resolved]
  - Weight decreased [Not Recovered/Not Resolved]
  - Polymerase chain reaction positive [Not Recovered/Not Resolved]
  - Dysphagia [Not Recovered/Not Resolved]
  - Anaemia [Not Recovered/Not Resolved]
  - Productive cough [Not Recovered/Not Resolved]
  - Dyskinesia [Not Recovered/Not Resolved]
  - Dysphagia [Not Recovered/Not Resolved]
  - Pneumonia [Not Recovered/Not Resolved]

NARRATIVE: CASE EVENT DATE: 20240101
